FAERS Safety Report 16718710 (Version 1)
Quarter: 2019Q3

REPORT INFORMATION
  Report Type: Spontaneous
  Country: US (occurrence: US)
  Receive Date: 20190820
  Receipt Date: 20190820
  Transmission Date: 20191005
  Serious: No
  Sender: FDA-Public Use
  Company Number: US-GLAXOSMITHKLINE-US2019147353

PATIENT
  Age: 70 Year
  Sex: Female

DRUGS (3)
  1. ABREVA [Suspect]
     Active Substance: DOCOSANOL
     Dosage: 5 TIMES, 4 OR 5 TIMES
     Dates: start: 20190801, end: 20190807
  2. ABREVA [Suspect]
     Active Substance: DOCOSANOL
     Indication: ORAL HERPES
     Dosage: 5 TIMES, 4 OR 5 TIMES
     Dates: end: 20190807
  3. ABREVA [Suspect]
     Active Substance: DOCOSANOL
     Dosage: 5 TIMES, 4 OR 5 TIMES
     Dates: start: 20190801, end: 20190807

REACTIONS (4)
  - Application site dryness [Not Recovered/Not Resolved]
  - Application site scar [Not Recovered/Not Resolved]
  - Application site discolouration [Not Recovered/Not Resolved]
  - Product use issue [Unknown]
